FAERS Safety Report 9355872 (Version 1)
Quarter: 2013Q2

REPORT INFORMATION
  Report Type: Spontaneous
  Country: CA (occurrence: None)
  Receive Date: 20130614
  Receipt Date: 20130614
  Transmission Date: 20140414
  Serious: Yes (Hospitalization, Other)
  Sender: FDA-Public Use
  Company Number: VAL_02564_2013

PATIENT
  Sex: Female

DRUGS (1)
  1. ROCALTROL [Suspect]
     Indication: VITAMIN SUPPLEMENTATION
     Route: 048
     Dates: start: 20130524, end: 201305

REACTIONS (3)
  - Shock [None]
  - Muscle rigidity [None]
  - Overdose [None]
